FAERS Safety Report 8166467-0 (Version None)
Quarter: 2012Q1

REPORT INFORMATION
  Report Type: 
  Country: None (occurrence: None)
  Receive Date: 20120227
  Receipt Date: 20110912
  Transmission Date: 20120608
  Serious: No
  Sender: FDA-Public Use
  Company Number: US-MYLANLABS-2011S1017877

PATIENT
  Age: 29 Year
  Sex: Female
  Weight: 56.7 kg

DRUGS (2)
  1. CLARAVIS [Suspect]
     Dates: start: 20110601
  2. AMNESTEEM [Suspect]
     Dates: end: 20110801

REACTIONS (4)
  - BLISTER [None]
  - TENDERNESS [None]
  - IRITIS [None]
  - ARTHRALGIA [None]
